FAERS Safety Report 10920396 (Version 1)
Quarter: 2015Q1

REPORT INFORMATION
  Report Type: Spontaneous
  Country: US (occurrence: US)
  Receive Date: 20150317
  Receipt Date: 20150317
  Transmission Date: 20150721
  Serious: No
  Sender: FDA-Public Use
  Company Number: US-BIOGENIDEC-2015BI031613

PATIENT
  Age: 56 Year
  Sex: Female

DRUGS (1)
  1. TECFIDERA [Suspect]
     Active Substance: DIMETHYL FUMARATE
     Indication: MULTIPLE SCLEROSIS
     Dates: start: 201404, end: 201404

REACTIONS (4)
  - Gastric disorder [Recovered/Resolved]
  - Menstruation irregular [Not Recovered/Not Resolved]
  - Memory impairment [Not Recovered/Not Resolved]
  - Premature menopause [Unknown]

NARRATIVE: CASE EVENT DATE: 201404
